FAERS Safety Report 8428095-9 (Version None)
Quarter: 2012Q2

REPORT INFORMATION
  Report Type: 
  Country: None (occurrence: None)
  Receive Date: 20120611
  Receipt Date: 20120329
  Transmission Date: 20120825
  Serious: No
  Sender: FDA-Public Use
  Company Number: US-ASTRAZENECA-2012SE20397

PATIENT
  Age: 59 Year
  Sex: Female

DRUGS (1)
  1. RHINOCORT [Suspect]
     Route: 045

REACTIONS (4)
  - MALAISE [None]
  - DISORIENTATION [None]
  - MULTIPLE ALLERGIES [None]
  - INTENTIONAL DRUG MISUSE [None]
